FAERS Safety Report 17456270 (Version 2)
Quarter: 2020Q3

REPORT INFORMATION
  Report Type: Spontaneous
  Country: JP (occurrence: JP)
  Receive Date: 20200225
  Receipt Date: 20200909
  Transmission Date: 20201102
  Serious: Yes (Hospitalization, Disabling)
  Sender: FDA-Public Use
  Company Number: JP-ELI_LILLY_AND_COMPANY-JP202002009402

PATIENT
  Age: 62 Year
  Sex: Male
  Weight: 65 kg

DRUGS (6)
  1. CYRAMZA [Suspect]
     Active Substance: RAMUCIRUMAB
     Indication: HEPATOCELLULAR CARCINOMA
     Dosage: 500 MG, CYCLICAL
     Route: 041
     Dates: start: 20200107, end: 20200128
  2. HIRUDOID [Concomitant]
     Active Substance: GLYCOSAMINOGLYCANS
     Indication: PALMAR-PLANTAR ERYTHRODYSAESTHESIA SYNDROME
     Dosage: UNK
     Route: 003
     Dates: start: 20190618
  3. ANTEBATE [Concomitant]
     Active Substance: BETAMETHASONE DIPROPIONATE
     Indication: PALMAR-PLANTAR ERYTHRODYSAESTHESIA SYNDROME
     Dosage: UNK
     Route: 003
     Dates: start: 20191001
  4. ZOMETA [Concomitant]
     Active Substance: ZOLEDRONIC ACID
     Indication: HEPATOCELLULAR CARCINOMA
     Dosage: 4 MG
     Route: 042
     Dates: start: 20190903
  5. DIPHENHYDRAMINE. [Concomitant]
     Active Substance: DIPHENHYDRAMINE
  6. MYSER [DIFLUPREDNATE] [Concomitant]
     Indication: PALMAR-PLANTAR ERYTHRODYSAESTHESIA SYNDROME
     Dosage: UNK
     Route: 003
     Dates: start: 20191001

REACTIONS (4)
  - Ascites [Unknown]
  - Hypoaesthesia [Unknown]
  - Oedema [Unknown]
  - Ocular myasthenia [Recovering/Resolving]

NARRATIVE: CASE EVENT DATE: 20200121
